FAERS Safety Report 6016289-1 (Version None)
Quarter: 2008Q4

REPORT INFORMATION
  Report Type: 
  Country: None (occurrence: None)
  Receive Date: 20081222
  Receipt Date: 20081212
  Transmission Date: 20090506
  Serious: Yes (Other)
  Sender: FDA-Public Use
  Company Number: US-TEVA-181750USA

PATIENT
  Sex: Female

DRUGS (3)
  1. COPAXONE [Suspect]
     Indication: MULTIPLE SCLEROSIS
     Route: 058
     Dates: start: 20081014, end: 20081201
  2. AZATHIOPRINE [Concomitant]
  3. NITROFURANTOIN [Concomitant]

REACTIONS (3)
  - BILE DUCT CANCER [None]
  - HEPATIC ENZYME INCREASED [None]
  - JAUNDICE [None]
